FAERS Safety Report 17488015 (Version 1)
Quarter: 2020Q1

REPORT INFORMATION
  Report Type: Spontaneous
  Country: US (occurrence: US)
  Receive Date: 20200302
  Receipt Date: 20200302
  Transmission Date: 20200409
  Serious: No
  Sender: FDA-Public Use
  Company Number: None

PATIENT
  Age: 42 Year
  Sex: Female
  Weight: 90 kg

DRUGS (1)
  1. XOFLUZA [Suspect]
     Active Substance: BALOXAVIR MARBOXIL
     Indication: INFLUENZA
     Dosage: ?          QUANTITY:2 TABLET(S);OTHER FREQUENCY:ONCE;?
     Route: 048
     Dates: start: 20200226, end: 20200226

REACTIONS (3)
  - Headache [None]
  - Paranasal sinus discomfort [None]
  - Sinusitis [None]

NARRATIVE: CASE EVENT DATE: 20200228
